FAERS Safety Report 6201927-0 (Version None)
Quarter: 2009Q2

REPORT INFORMATION
  Report Type: 
  Country: None (occurrence: None)
  Receive Date: 20090526
  Receipt Date: 20090522
  Transmission Date: 20091009
  Serious: Yes (Hospitalization, Other)
  Sender: FDA-Public Use
  Company Number: PHHY2008JP06419

PATIENT
  Age: 76 Year
  Sex: Female

DRUGS (5)
  1. VOLTAREN [Suspect]
     Indication: CEREBRAL INFARCTION
     Route: 048
  2. VOLTAREN [Suspect]
     Indication: ARTHRALGIA
  3. NSAID'S [Concomitant]
     Route: 048
  4. MELOXICAM [Concomitant]
  5. ASPIRIN [Concomitant]
     Indication: ANGINA PECTORIS

REACTIONS (15)
  - ANAEMIA [None]
  - ANGINA PECTORIS [None]
  - ASPIRATION BONE MARROW [None]
  - ENDOSCOPY ABNORMAL [None]
  - ENTERITIS [None]
  - FATIGUE [None]
  - GASTRIC ULCER [None]
  - GASTROINTESTINAL HAEMORRHAGE [None]
  - IRON DEFICIENCY ANAEMIA [None]
  - MALAISE [None]
  - MUCOSAL INFLAMMATION [None]
  - OEDEMA MUCOSAL [None]
  - SMALL INTESTINAL STENOSIS [None]
  - SMALL INTESTINAL ULCER HAEMORRHAGE [None]
  - SMALL INTESTINE ULCER [None]
